FAERS Safety Report 7336456-4 (Version None)
Quarter: 2011Q1

REPORT INFORMATION
  Report Type: 
  Country: None (occurrence: None)
  Receive Date: 20110307
  Receipt Date: 20110303
  Transmission Date: 20110831
  Serious: Yes (Hospitalization, Other)
  Sender: FDA-Public Use
  Company Number: US-AMGEN-USASP2010000160

PATIENT
  Age: 60 Year
  Sex: Male
  Weight: 136.51 kg

DRUGS (2)
  1. PREDNISONE [Concomitant]
  2. NPLATE [Suspect]
     Indication: IDIOPATHIC THROMBOCYTOPENIC PURPURA
     Dosage: 0.5 A?G/KG, QWK
     Route: 058
     Dates: start: 20100924, end: 20101101

REACTIONS (3)
  - THROMBOCYTOSIS [None]
  - STAPHYLOCOCCAL BACTERAEMIA [None]
  - SEPTIC SHOCK [None]
